FAERS Safety Report 8241574 (Version 2)
Quarter: 2015Q4

REPORT INFORMATION
  Report Type: Report from Study
  Country: AT (occurrence: AT)
  Receive Date: 20111111
  Receipt Date: 20151030
  Transmission Date: 20160305
  Serious: Yes (Death, Hospitalization)
  Sender: FDA-Public Use
  Company Number: AT-ROCHE-1009118

PATIENT
  Age: 38 Year
  Sex: Female

DRUGS (4)
  1. IRINOTECAN [Suspect]
     Active Substance: IRINOTECAN
     Indication: GLIOBLASTOMA
     Route: 042
     Dates: start: 20100303, end: 20100312
  2. BEVACIZUMAB [Suspect]
     Active Substance: BEVACIZUMAB
     Indication: GLIOBLASTOMA
     Route: 042
     Dates: start: 20100303, end: 20100312
  3. FORTECORTIN [Concomitant]
     Active Substance: DEXAMETHASONE
     Route: 065
  4. DEPAKINE [Concomitant]
     Active Substance: VALPROATE SODIUM
     Route: 065

REACTIONS (2)
  - Glioblastoma [Recovering/Resolving]
  - Brain compression [Recovering/Resolving]

NARRATIVE: CASE EVENT DATE: 20100312
